FAERS Safety Report 6264971-3 (Version None)
Quarter: 2009Q3

REPORT INFORMATION
  Report Type: 
  Country: None (occurrence: None)
  Receive Date: 20090709
  Receipt Date: 20090709
  Transmission Date: 20100115
  Serious: No
  Sender: FDA-Public Use
  Company Number: None

PATIENT
  Age: 13 Month
  Sex: Female
  Weight: 14.5151 kg

DRUGS (1)
  1. CHILDRENS TYLENOL [Suspect]
     Indication: PYREXIA
     Dosage: 3/4 TSP Q 4 HOURS PRN PER NG

REACTIONS (2)
  - RASH ERYTHEMATOUS [None]
  - RASH MACULO-PAPULAR [None]
